FAERS Safety Report 8935280 (Version 2)
Quarter: 2012Q4

REPORT INFORMATION
  Report Type: 
  Country: IL (occurrence: IL)
  Receive Date: 20121129
  Receipt Date: 20121221
  Transmission Date: 20130627
  Serious: Yes (Hospitalization, Other)
  Sender: FDA-Public Use
  Company Number: IL-PFIZER INC-2012299535

PATIENT
  Age: 50 Year
  Sex: Female

DRUGS (4)
  1. CHAMPIX [Suspect]
     Indication: SMOKING CESSATION THERAPY
     Dosage: 0.5 mg, 1x/day
     Route: 048
     Dates: start: 201204, end: 201206
  2. CHAMPIX [Interacting]
     Dosage: 1 mg, 2x/day
     Dates: start: 201206, end: 201206
  3. RITALIN [Interacting]
     Dosage: UNK
  4. OCSAAR [Concomitant]
     Indication: HYPERTENSION
     Dosage: UNK

REACTIONS (6)
  - Abnormal dreams [Unknown]
  - Nausea [Unknown]
  - Drug interaction [Recovered/Resolved]
  - Aneurysm [Recovered/Resolved]
  - Hypertension [Not Recovered/Not Resolved]
  - Headache [Recovered/Resolved]
